FAERS Safety Report 17898744 (Version 1)
Quarter: 2020Q2

REPORT INFORMATION
  Report Type: Spontaneous
  Country: US (occurrence: US)
  Receive Date: 20200616
  Receipt Date: 20200616
  Transmission Date: 20200714
  Serious: No
  Sender: FDA-Public Use
  Company Number: US-ALLERGAN-1943774US

PATIENT
  Sex: Male

DRUGS (1)
  1. PODOFILOX UNK [Suspect]
     Active Substance: PODOFILOX
     Indication: SKIN PAPILLOMA
     Dosage: UNKNOWN
     Route: 061

REACTIONS (2)
  - Therapeutic response decreased [Unknown]
  - Application site hypoaesthesia [Recovered/Resolved]
